FAERS Safety Report 7944259-2 (Version None)
Quarter: 2011Q4

REPORT INFORMATION
  Report Type: 
  Country: None (occurrence: None)
  Receive Date: 20111129
  Receipt Date: 20111116
  Transmission Date: 20120403
  Serious: Yes (Hospitalization)
  Sender: FDA-Public Use
  Company Number: US-BIOGENIDEC-2011BI037276

PATIENT
  Age: 47 Year
  Sex: Male

DRUGS (4)
  1. TYSABRI [Suspect]
     Indication: MULTIPLE SCLEROSIS
     Route: 042
     Dates: start: 20090924
  2. HYDROCHLOROTHIAZIDE [Concomitant]
     Indication: HYPERTENSION
  3. AMANTADINE HCL [Concomitant]
     Indication: FATIGUE
  4. TIZANIDINE HCL [Concomitant]
     Indication: MUSCLE SPASTICITY

REACTIONS (2)
  - GASTROENTERITIS VIRAL [None]
  - UHTHOFF'S PHENOMENON [None]
